FAERS Safety Report 12255411 (Version 3)
Quarter: 2023Q1

REPORT INFORMATION
  Report Type: Spontaneous
  Country: CH (occurrence: CH)
  Receive Date: 20160412
  Receipt Date: 20230228
  Transmission Date: 20230418
  Serious: Yes (Hospitalization)
  Sender: FDA-Public Use
  Company Number: CH-HORIZON-BUP-0045-2016

PATIENT

DRUGS (6)
  1. SODIUM PHENYLBUTYRATE [Suspect]
     Active Substance: SODIUM PHENYLBUTYRATE
     Indication: Ornithine transcarbamoylase deficiency
     Dosage: 143-338 MG/KG BODYWEIGHT
     Route: 065
     Dates: start: 200906, end: 201312
  2. UCD 2 [Concomitant]
  3. CITRULLINE [Concomitant]
     Active Substance: CITRULLINE
     Dosage: 2-3 MMOL/KG BODYWEIGHT
     Route: 065
  4. ARGININE [Concomitant]
     Active Substance: ARGININE
     Dosage: 1.4-2.2 MMOL/KG BODYWEIGHT
     Route: 065
  5. SODIUM BENZOATE [Concomitant]
     Active Substance: SODIUM BENZOATE
     Dosage: 166-311 MG/KG BODYWEIGHT
     Route: 065
  6. GLYCEROL PHENYLBUTYRATE [Concomitant]
     Active Substance: GLYCEROL PHENYLBUTYRATE
     Indication: Ornithine transcarbamoylase deficiency
     Dosage: UNK
     Route: 065
     Dates: start: 201312

REACTIONS (1)
  - Hyperammonaemic crisis [Recovering/Resolving]
